FAERS Safety Report 8356514-5 (Version None)
Quarter: 2012Q2

REPORT INFORMATION
  Report Type: 
  Country: None (occurrence: None)
  Receive Date: 20120514
  Receipt Date: 20120502
  Transmission Date: 20120825
  Serious: Yes (Other)
  Sender: FDA-Public Use
  Company Number: US-ASTRAZENECA-2012SE28366

PATIENT

DRUGS (1)
  1. FASLODEX [Suspect]
     Dosage: TOTAL DOSAGE- 500 MG/ 10 ML
     Route: 030

REACTIONS (2)
  - INJECTION SITE OEDEMA [None]
  - BREAST CANCER METASTATIC [None]
